FAERS Safety Report 9359811 (Version 1)
Quarter: 2013Q2

REPORT INFORMATION
  Report Type: Spontaneous
  Country: IL (occurrence: IL)
  Receive Date: 20130621
  Receipt Date: 20130621
  Transmission Date: 20140414
  Serious: Yes (Hospitalization)
  Sender: FDA-Public Use
  Company Number: IL-ROCHE-1229738

PATIENT
  Age: 40 Year
  Sex: Female

DRUGS (5)
  1. AVASTIN [Suspect]
     Indication: COLON CANCER METASTATIC
     Route: 065
  2. IRINOTECAN [Suspect]
     Indication: COLON CANCER METASTATIC
     Route: 065
  3. FLUOROURACIL [Suspect]
     Indication: COLON CANCER METASTATIC
     Route: 065
  4. FOLINIC ACID [Suspect]
     Indication: COLON CANCER METASTATIC
     Route: 065
  5. OXALIPLATIN [Suspect]
     Indication: COLON CANCER METASTATIC
     Route: 065

REACTIONS (3)
  - Intestinal obstruction [Unknown]
  - Diarrhoea [Recovered/Resolved]
  - Disease progression [Unknown]
